FAERS Safety Report 7593492-0 (Version None)
Quarter: 2011Q3

REPORT INFORMATION
  Report Type: 
  Country: None (occurrence: None)
  Receive Date: 20110706
  Receipt Date: 20110627
  Transmission Date: 20111222
  Serious: Yes (Hospitalization)
  Sender: FDA-Public Use
  Company Number: US-ASTRAZENECA-2011SE11433

PATIENT
  Age: 61 Year
  Sex: Female

DRUGS (12)
  1. ACETAMINOPHEN [Suspect]
     Route: 065
  2. REQUIP [Suspect]
     Route: 065
  3. LOVASTATIN [Suspect]
     Route: 065
  4. GABAPENTIN [Suspect]
     Route: 065
  5. PREDNISONE [Suspect]
     Route: 065
  6. NEXIUM [Suspect]
     Indication: GASTROOESOPHAGEAL REFLUX DISEASE
     Route: 048
  7. METHOTREXATE [Suspect]
     Indication: ARTHRITIS
     Route: 065
  8. METHOCARBAMOL [Suspect]
     Route: 065
  9. BUSPAR [Suspect]
     Route: 065
  10. METHOTREXATE [Suspect]
     Route: 065
  11. ALLOPURINOL [Suspect]
     Route: 065
  12. CITALOPRAM HYDROBROMIDE [Suspect]
     Route: 065

REACTIONS (12)
  - GASTROOESOPHAGEAL REFLUX DISEASE [None]
  - DYSLIPIDAEMIA [None]
  - DIARRHOEA [None]
  - NAUSEA [None]
  - ANXIETY [None]
  - RESTLESS LEGS SYNDROME [None]
  - NASAL CONGESTION [None]
  - VOMITING [None]
  - BRONCHITIS [None]
  - ADRENAL DISORDER [None]
  - PYREXIA [None]
  - HYPERURICAEMIA [None]
